FAERS Safety Report 8862878 (Version 2)
Quarter: 2012Q4

REPORT INFORMATION
  Report Type: 
  Country: JP (occurrence: JP)
  Receive Date: 20121026
  Receipt Date: 20121112
  Transmission Date: 20130627
  Serious: Yes (Hospitalization, Other)
  Sender: FDA-Public Use
  Company Number: JP-PFIZER INC-2012268197

PATIENT
  Age: 53 Year
  Sex: Male

DRUGS (1)
  1. LYRICA [Suspect]
     Indication: POSTOPERATIVE PAIN
     Dosage: 300 mg daily
     Route: 048

REACTIONS (1)
  - Interstitial lung disease [Recovering/Resolving]
